FAERS Safety Report 5356782-8 (Version None)
Quarter: 2007Q2

REPORT INFORMATION
  Report Type: 
  Country: None (occurrence: None)
  Receive Date: 20070614
  Receipt Date: 20060627
  Transmission Date: 20071010
  Serious: No
  Sender: FDA-Public Use
  Company Number: US-ASTRAZENECA-2006UW06746

PATIENT
  Age: 25290 Day
  Sex: Female
  Weight: 81.6 kg

DRUGS (2)
  1. ATACAND [Suspect]
     Indication: HYPERTENSION
     Route: 048
     Dates: start: 20060406
  2. DYAZIDE [Concomitant]
     Indication: BLOOD PRESSURE

REACTIONS (3)
  - COUGH [None]
  - DRY THROAT [None]
  - NASAL CONGESTION [None]
